FAERS Safety Report 5831344-4 (Version None)
Quarter: 2008Q3

REPORT INFORMATION
  Report Type: 
  Country: None (occurrence: None)
  Receive Date: 20080801
  Receipt Date: 20080708
  Transmission Date: 20090109
  Serious: No
  Sender: FDA-Public Use
  Company Number: US-BOEHRINGER INGELHEIM GMBH, GERMANY-2008-BP-09410BP

PATIENT
  Sex: Female

DRUGS (12)
  1. MIRAPEX [Suspect]
     Indication: RESTLESS LEGS SYNDROME
  2. FLUOXETINE [Concomitant]
  3. ESTRADIOL [Concomitant]
  4. ATENOLOL [Concomitant]
  5. SIMVASTATIN [Concomitant]
  6. LISINOPRIL [Concomitant]
  7. LASIX [Concomitant]
  8. ASPIRIN [Concomitant]
  9. ASCORBIC ACID [Concomitant]
  10. ULTRA-VITAMIN [Concomitant]
  11. EVENING PRIMROSE OIL [Concomitant]
  12. VITAMIN D [Concomitant]

REACTIONS (1)
  - CONDITION AGGRAVATED [None]
